FAERS Safety Report 6740752-9 (Version None)
Quarter: 2010Q2

REPORT INFORMATION
  Report Type: 
  Country: None (occurrence: None)
  Receive Date: 20100524
  Receipt Date: 20100511
  Transmission Date: 20101027
  Serious: Yes (Life-Threatening)
  Sender: FDA-Public Use
  Company Number: 2010SP001371

PATIENT
  Age: 2 Year
  Sex: Female
  Weight: 11.9 kg

DRUGS (4)
  1. XOPENEX [Suspect]
     Dosage: PRN; INHALATION
     Route: 055
  2. CETIRIZINE (CON.) [Concomitant]
  3. BUDESONIDE (CON.) [Concomitant]
  4. AZITHROMYCIN (CON.) [Concomitant]

REACTIONS (8)
  - BLOOD PH DECREASED [None]
  - HAEMATOCRIT DECREASED [None]
  - HAEMOGLOBIN DECREASED [None]
  - LUNG DISORDER [None]
  - PNEUMONIA [None]
  - PULMONARY CONGESTION [None]
  - PURULENT DISCHARGE [None]
  - PYOTHORAX [None]
